FAERS Safety Report 5367600-6 (Version None)
Quarter: 2007Q2

REPORT INFORMATION
  Report Type: 
  Country: None (occurrence: None)
  Receive Date: 20070622
  Receipt Date: 20070619
  Transmission Date: 20071010
  Serious: Yes (Life-Threatening, Hospitalization, Other)
  Sender: FDA-Public Use
  Company Number: US-SANOFI-SYNTHELABO-D01200704098

PATIENT
  Sex: Male
  Weight: 79.3 kg

DRUGS (5)
  1. ONDANSETRON [Concomitant]
     Route: 042
     Dates: start: 20070619, end: 20070619
  2. OXALIPLATIN [Suspect]
     Dosage: 160MG/D5W 250 ML
     Route: 042
     Dates: start: 20070619, end: 20070619
  3. LEUCOVORIN CALCIUM [Suspect]
     Dosage: 650MG/D5W 250ML
     Route: 042
     Dates: start: 20070619, end: 20070619
  4. FLUOROURACIL [Suspect]
     Dosage: 400 MG/M?, IV BOLUS D1+D2 FOLLOWED BY 5-FU 2400 MG/M? OVER 46-HOUR CONTINUOUS INFUSION.
     Route: 042
     Dates: start: 20070605, end: 20070605
  5. PLACEBO [Suspect]
     Route: 048
     Dates: start: 20070327, end: 20070619

REACTIONS (1)
  - PRESYNCOPE [None]
